FAERS Safety Report 11078593 (Version 1)
Quarter: 2015Q2

REPORT INFORMATION
  Report Type: Spontaneous
  Country: US (occurrence: None)
  Receive Date: 20150428
  Receipt Date: 20150428
  Transmission Date: 20150821
  Serious: Yes (Hospitalization)
  Sender: FDA-Public Use
  Company Number: IPC201504-000218

PATIENT
  Age: 73 Year
  Sex: Female

DRUGS (2)
  1. LEVOFLOXACIN. [Concomitant]
     Active Substance: LEVOFLOXACIN
  2. WARFARIN [Suspect]
     Active Substance: WARFARIN
     Indication: ATRIAL FIBRILLATION

REACTIONS (7)
  - Goitre [None]
  - Hyperthyroidism [None]
  - Obstructive airways disorder [None]
  - Urinary tract infection [None]
  - Post procedural complication [None]
  - Thyroid haemorrhage [None]
  - Hypothyroidism [None]
